FAERS Safety Report 9204507 (Version 1)
Quarter: 2013Q1

REPORT INFORMATION
  Report Type: Spontaneous
  Country: US (occurrence: None)
  Receive Date: 20120709
  Receipt Date: 20120709
  Transmission Date: 20140127
  Serious: Yes (Hospitalization, Other)
  Sender: FDA-Public Use
  Company Number: PHHY2011US45065

PATIENT
  Age: 53 Year
  Sex: Female

DRUGS (17)
  1. GLEEVEC [Suspect]
     Route: 048
  2. ATOVAQUONE (ATOVAQUONE) [Concomitant]
  3. BENADRYL (AMMONIUM CHLORIDE, [Concomitant]
  4. CYTOXAN (CYCLOPHOSPHAMIDE) [Concomitant]
  5. EPIPEN (EPINEPHRINE) [Concomitant]
  6. FEXOFENADINE HYDROCHLORIDE (FEXOFENADINE HYDROCHLORIDE ) [Concomitant]
  7. METRONIDAZOLE (METRONIDAZOLE) [Concomitant]
  8. OMEPRAZOLE (OMEPRAZOLE) [Concomitant]
  9. ACETAMINOPHEN W/ OXYCODONE (OXYCODONE HYDROCHLORIDE, PARACETAMOL) [Concomitant]
  10. PREDNISONE (PREDNISONE) [Concomitant]
  11. RITUXAN (RITUXIMAB) [Concomitant]
  12. SALSALATE (SALSALATE) [Concomitant]
  13. ERGOCALCIFEROL (ERGOCALCIFEROL) [Concomitant]
  14. XANAX (ALPRAZOLAM) [Concomitant]
  15. XANAX (ALPRAZOLAM ) [Concomitant]
  16. ZOFRAN (ONDANSETRON HYDROCHLORIDE) [Concomitant]
  17. SOLUMEDROL (METHYOPREDNISOLONE SODIUM SUCCINATE) [Concomitant]

REACTIONS (20)
  - Renal failure [None]
  - Haematocrit decreased [None]
  - Dizziness [None]
  - Dyspnoea [None]
  - Leukocytosis [None]
  - Blood lactate dehydrogenase increased [None]
  - Chalazion [None]
  - Hyperkalaemia [None]
  - Arthralgia [None]
  - Night sweats [None]
  - Diarrhoea [None]
  - Body temperature increased [None]
  - Blood pressure systolic increased [None]
  - Blood creatinine increased [None]
  - Glomerulonephritis rapidly progressive [None]
  - Dyspnoea exertional [None]
  - White blood cell count increased [None]
  - Monocytosis [None]
  - Blood uric acid increased [None]
  - Eyelid oedema [None]
